FAERS Safety Report 7864423-0 (Version None)
Quarter: 2011Q4

REPORT INFORMATION
  Report Type: 
  Country: None (occurrence: None)
  Receive Date: 20111028
  Receipt Date: 20111011
  Transmission Date: 20120403
  Serious: Yes (Other)
  Sender: FDA-Public Use
  Company Number: IT-PFIZER INC-2011167147

PATIENT
  Age: 69 Year
  Sex: Male

DRUGS (1)
  1. RAMIPRIL [Suspect]
     Indication: HYPERTENSION
     Dosage: 5 MG/DAY

REACTIONS (9)
  - PYREXIA [None]
  - EOSINOPHILIA [None]
  - DRUG RASH WITH EOSINOPHILIA AND SYSTEMIC SYMPTOMS [None]
  - RASH ERYTHEMATOUS [None]
  - HEPATOSPLENOMEGALY [None]
  - ALANINE AMINOTRANSFERASE INCREASED [None]
  - FACE OEDEMA [None]
  - LYMPHADENOPATHY [None]
  - HEPATITIS [None]
